FAERS Safety Report 4817072-2 (Version None)
Quarter: 2005Q4

REPORT INFORMATION
  Report Type: 
  Country: None (occurrence: None)
  Receive Date: 20051101
  Receipt Date: 20051020
  Transmission Date: 20060501
  Serious: Yes (Hospitalization)
  Sender: FDA-Public Use
  Company Number: FR-BRISTOL-MYERS SQUIBB COMPANY-13152673

PATIENT
  Age: 75 Year
  Sex: Male
  Weight: 63 kg

DRUGS (4)
  1. REYATAZ [Suspect]
     Indication: HIV INFECTION
     Route: 048
     Dates: start: 20041109
  2. VIDEX [Suspect]
     Indication: HIV INFECTION
     Route: 048
     Dates: start: 20041109
  3. NORVIR [Suspect]
     Indication: HIV INFECTION
     Dates: start: 20041109
  4. VIREAD [Suspect]
     Indication: HIV INFECTION
     Dates: start: 20041109

REACTIONS (2)
  - HYPERBILIRUBINAEMIA [None]
  - KAPOSI'S SARCOMA [None]
